FAERS Safety Report 5583601-7 (Version None)
Quarter: 2008Q1

REPORT INFORMATION
  Report Type: 
  Country: None (occurrence: None)
  Receive Date: 20080107
  Receipt Date: 20080103
  Transmission Date: 20080703
  Serious: Yes (Other)
  Sender: FDA-Public Use
  Company Number: ES-MERCK-0711ESP00011

PATIENT
  Age: 61 Year
  Sex: Male

DRUGS (6)
  1. INDOCIN [Suspect]
     Indication: ORAL SURGERY
     Route: 048
     Dates: start: 20070915, end: 20070918
  2. INDOCIN [Suspect]
     Indication: BONE DISORDER
     Route: 048
     Dates: start: 20070915, end: 20070918
  3. DEFLAZACORT [Suspect]
     Indication: ORAL SURGERY
     Route: 048
     Dates: start: 20070915, end: 20070918
  4. DEFLAZACORT [Suspect]
     Indication: BONE DISORDER
     Route: 048
     Dates: start: 20070915, end: 20070918
  5. AMOXICILLIN AND CLAVULANATE POTASSIUM [Concomitant]
     Indication: ORAL SURGERY
     Route: 048
     Dates: start: 20070915, end: 20070925
  6. AMOXICILLIN AND CLAVULANATE POTASSIUM [Concomitant]
     Indication: BONE DISORDER
     Route: 048
     Dates: start: 20070915, end: 20070925

REACTIONS (2)
  - BLOOD PRESSURE SYSTOLIC INCREASED [None]
  - DRUG INTERACTION [None]
